FAERS Safety Report 7267311-6 (Version None)
Quarter: 2011Q1

REPORT INFORMATION
  Report Type: 
  Country: None (occurrence: None)
  Receive Date: 20110201
  Receipt Date: 20110124
  Transmission Date: 20110831
  Serious: Yes (Death)
  Sender: FDA-Public Use
  Company Number: JP-SANOFI-AVENTIS-2011SA005963

PATIENT
  Sex: Male

DRUGS (1)
  1. ELPLAT [Suspect]
     Route: 041

REACTIONS (1)
  - MYOCARDIAL INFARCTION [None]
